FAERS Safety Report 25037821 (Version 2)
Quarter: 2025Q2

REPORT INFORMATION
  Report Type: Spontaneous
  Country: US (occurrence: US)
  Receive Date: 20250304
  Receipt Date: 20250402
  Transmission Date: 20250716
  Serious: Yes (Other)
  Sender: SANOFI AVENTIS
  Company Number: US-SA-2025SA064315

PATIENT
  Age: 73 Year
  Sex: Female

DRUGS (1)
  1. DUPIXENT [Suspect]
     Active Substance: DUPILUMAB
     Indication: Dermatitis atopic
     Dosage: 300 MG, QOW
     Route: 065
     Dates: start: 202405

REACTIONS (8)
  - Cataract [Unknown]
  - Uveitis [Unknown]
  - Eye pain [Unknown]
  - Condition aggravated [Unknown]
  - Ocular discomfort [Unknown]
  - Condition aggravated [Unknown]
  - Alopecia [Unknown]
  - Dry eye [Unknown]
